FAERS Safety Report 7563429-9 (Version None)
Quarter: 2011Q2

REPORT INFORMATION
  Report Type: 
  Country: None (occurrence: None)
  Receive Date: 20110622
  Receipt Date: 20110613
  Transmission Date: 20111010
  Serious: Yes (Other)
  Sender: FDA-Public Use
  Company Number: B0727337A

PATIENT
  Age: 90 Year
  Sex: Female

DRUGS (1)
  1. TIMENTIN [Suspect]
     Route: 065

REACTIONS (3)
  - RENAL FAILURE ACUTE [None]
  - ANGIOEDEMA [None]
  - DYSPNOEA [None]
